FAERS Safety Report 8487383-0 (Version None)
Quarter: 2012Q3

REPORT INFORMATION
  Report Type: 
  Country: None (occurrence: None)
  Receive Date: 20120705
  Receipt Date: 20120625
  Transmission Date: 20120928
  Serious: Yes (Hospitalization, Other)
  Sender: FDA-Public Use
  Company Number: US-ELI_LILLY_AND_COMPANY-US201206009152

PATIENT
  Age: 40 Year
  Sex: Male

DRUGS (4)
  1. ZYPREXA [Suspect]
     Dosage: 30 MG, EACH EVENING
  2. HALDOL [Concomitant]
  3. ZYPREXA [Suspect]
     Dosage: 60 MG, EACH EVENING
  4. ZYPREXA [Suspect]
     Dosage: 15 MG, EACH EVENING

REACTIONS (4)
  - BRAIN INJURY [None]
  - HOSPITALISATION [None]
  - OVERDOSE [None]
  - DIABETES MELLITUS [None]
